FAERS Safety Report 13396177 (Version 1)
Quarter: 2017Q2

REPORT INFORMATION
  Report Type: Spontaneous
  Country: US (occurrence: US)
  Receive Date: 20170403
  Receipt Date: 20170403
  Transmission Date: 20170830
  Serious: Yes (Other)
  Sender: FDA-Public Use
  Company Number: US-ALEXION-A201703051

PATIENT
  Age: 62 Year
  Sex: Male

DRUGS (1)
  1. SOLIRIS [Suspect]
     Active Substance: ECULIZUMAB
     Indication: PAROXYSMAL NOCTURNAL HAEMOGLOBINURIA
     Dosage: 900 MG, Q2W
     Route: 042

REACTIONS (13)
  - Chromaturia [Not Recovered/Not Resolved]
  - Urinary tract infection [Unknown]
  - Vomiting [Unknown]
  - Blood lactate dehydrogenase abnormal [Unknown]
  - Diarrhoea [Not Recovered/Not Resolved]
  - Blood bilirubin increased [Unknown]
  - Liver disorder [Unknown]
  - Dyspnoea [Not Recovered/Not Resolved]
  - Fatigue [Unknown]
  - Heart rate increased [Not Recovered/Not Resolved]
  - Haemolysis [Unknown]
  - Pyrexia [Not Recovered/Not Resolved]
  - Chills [Not Recovered/Not Resolved]

NARRATIVE: CASE EVENT DATE: 201703
